FAERS Safety Report 22876124 (Version 24)
Quarter: 2025Q4

REPORT INFORMATION
  Report Type: Spontaneous
  Country: CA (occurrence: CA)
  Receive Date: 20230829
  Receipt Date: 20251003
  Transmission Date: 20260117
  Serious: Yes (Hospitalization, Other)
  Sender: CHATTEM
  Company Number: CA-SAKK-2020SA095613AA

PATIENT
  Age: 78 Year
  Sex: Female
  Weight: 93 kg

DRUGS (9)
  1. BISACODYL [Suspect]
     Active Substance: BISACODYL
     Indication: Product used for unknown indication
     Dosage: 8.6 MILLIGRAM
  2. BISACODYL [Suspect]
     Active Substance: BISACODYL
     Route: 065
  3. BISACODYL [Suspect]
     Active Substance: BISACODYL
     Route: 065
  4. RANITIDINE [Suspect]
     Active Substance: RANITIDINE
     Indication: Gastrooesophageal reflux disease
     Route: 048
  5. RANITIDINE [Suspect]
     Active Substance: RANITIDINE
     Indication: Influenza
     Route: 048
  6. RANITIDINE [Suspect]
     Active Substance: RANITIDINE
     Route: 048
  7. RANITIDINE [Suspect]
     Active Substance: RANITIDINE
     Route: 048
  8. LANSOPRAZOLE [Suspect]
     Active Substance: LANSOPRAZOLE
     Indication: Gastrooesophageal reflux disease
     Dosage: UNK?FORMULATION: DELAYED RELEASE
     Route: 048
  9. LANSOPRAZOLE [Suspect]
     Active Substance: LANSOPRAZOLE
     Dosage: UNK
     Route: 065

REACTIONS (1)
  - Fatigue [Not Recovered/Not Resolved]
